FAERS Safety Report 5113085-4 (Version None)
Quarter: 2006Q3

REPORT INFORMATION
  Report Type: 
  Country: None (occurrence: None)
  Receive Date: 20060731
  Receipt Date: 20060505
  Transmission Date: 20061208
  Serious: No
  Sender: FDA-Public Use
  Company Number: 2006PV013329

PATIENT
  Age: 46 Year
  Sex: Male
  Weight: 136.0791 kg

DRUGS (11)
  1. BYETTA [Suspect]
     Indication: DIABETES MELLITUS NON-INSULIN-DEPENDENT
     Dosage: 10 MCG;BID;SC
     Route: 058
     Dates: start: 20060503
  2. PRECOSE [Concomitant]
  3. ACTOS [Concomitant]
  4. GLYBURIDE [Concomitant]
  5. LANTUS [Concomitant]
  6. COREG [Concomitant]
  7. COZAAR [Concomitant]
  8. NORVASC [Concomitant]
  9. TRIAMTERENE AND HYDROCHLOROTHIAZIDE [Concomitant]
  10. ASPIRIN [Concomitant]
  11. FIBER TABLETS [Concomitant]

REACTIONS (8)
  - ASTHENIA [None]
  - BLOOD GLUCOSE INCREASED [None]
  - COLD SWEAT [None]
  - DIARRHOEA [None]
  - DIZZINESS [None]
  - DYSPEPSIA [None]
  - LETHARGY [None]
  - NAUSEA [None]
